FAERS Safety Report 8032968-9 (Version None)
Quarter: 2012Q1

REPORT INFORMATION
  Report Type: 
  Country: None (occurrence: None)
  Receive Date: 20120110
  Receipt Date: 20120103
  Transmission Date: 20120608
  Serious: Yes (Other)
  Sender: FDA-Public Use
  Company Number: US-BAYER-2011-034804

PATIENT
  Age: 26 Year
  Sex: Female
  Weight: 86.168 kg

DRUGS (2)
  1. DROSPIRENONE AND ETHINYL ESTRADIOL [Suspect]
     Indication: CONTRACEPTION
     Dosage: UNK
     Route: 048
     Dates: start: 20100401, end: 20110801
  2. YAZ [Suspect]
     Indication: CONTRACEPTION
     Dosage: UNK
     Route: 048
     Dates: start: 20070401, end: 20100801

REACTIONS (5)
  - GALLBLADDER PAIN [None]
  - ANHEDONIA [None]
  - ANXIETY [None]
  - CHOLELITHIASIS [None]
  - PAIN [None]
